FAERS Safety Report 9201329 (Version 1)
Quarter: 2013Q2

REPORT INFORMATION
  Report Type: Spontaneous
  Country: US (occurrence: US)
  Receive Date: 20130401
  Receipt Date: 20130401
  Transmission Date: 20140414
  Serious: Yes (Other)
  Sender: FDA-Public Use
  Company Number: US-SANOFI-AVENTIS-2013SA032700

PATIENT
  Age: 87 Year
  Sex: Female

DRUGS (1)
  1. LANTUS [Suspect]
     Indication: TYPE 2 DIABETES MELLITUS
     Dosage: PRODUCT STARTED AROUND 2006 DOSE:15 UNIT(S)
     Route: 065

REACTIONS (3)
  - Cataract [Unknown]
  - Retinal injury [Unknown]
  - Visual impairment [Unknown]
